FAERS Safety Report 6011265-7 (Version None)
Quarter: 2008Q4

REPORT INFORMATION
  Report Type: 
  Country: None (occurrence: None)
  Receive Date: 20081218
  Receipt Date: 20081209
  Transmission Date: 20090506
  Serious: Yes (Other)
  Sender: FDA-Public Use
  Company Number: PHHO2008IT12736

PATIENT
  Sex: Female
  Weight: 72 kg

DRUGS (4)
  1. ZOLEDRONATE T29581+SOLINJ+BM [Suspect]
     Indication: METASTASES TO BONE
     Dosage: 4 MG, UNK
     Route: 042
     Dates: start: 20061227, end: 20080620
  2. FEMARA [Concomitant]
     Indication: BREAST CANCER
     Dosage: UNK
     Dates: start: 20070124
  3. CALCIUM [Concomitant]
  4. VITAMIN D [Concomitant]

REACTIONS (5)
  - DEBRIDEMENT [None]
  - DENTAL OPERATION [None]
  - OSTEOLYSIS [None]
  - OSTEOMYELITIS [None]
  - OSTEONECROSIS [None]
